FAERS Safety Report 8732013 (Version 2)
Quarter: 2012Q4

REPORT INFORMATION
  Report Type: 
  Country: US (occurrence: US)
  Receive Date: 20120820
  Receipt Date: 20120912
  Transmission Date: 20130627
  Serious: Yes (Hospitalization, Other)
  Sender: FDA-Public Use
  Company Number: US-JNJFOC-20120804250

PATIENT
  Age: 70 None
  Sex: Female
  Weight: 68.04 kg

DRUGS (20)
  1. INVEGA SUSTENNA [Suspect]
     Indication: SCHIZOAFFECTIVE DISORDER BIPOLAR TYPE
     Route: 042
     Dates: start: 20120809
  2. INVEGA SUSTENNA [Suspect]
     Indication: SCHIZOAFFECTIVE DISORDER BIPOLAR TYPE
     Route: 042
     Dates: start: 20120712, end: 20120712
  3. INVEGA SUSTENNA [Suspect]
     Indication: SCHIZOAFFECTIVE DISORDER BIPOLAR TYPE
     Route: 042
     Dates: start: 20120702, end: 20120702
  4. INVEGA [Suspect]
     Indication: PRODUCT USED FOR UNKNOWN INDICATION
     Dosage: 9 plus mg but the reporter was with the beleif that it was 3 mg pills ( three of them)
     Route: 048
     Dates: start: 20120701
  5. LITHIUM [Interacting]
     Indication: BIPOLAR DISORDER
     Route: 048
     Dates: start: 1996
  6. LITHIUM [Interacting]
     Indication: BIPOLAR DISORDER
     Route: 048
     Dates: start: 201001
  7. LITHIUM [Interacting]
     Indication: BIPOLAR DISORDER
     Route: 048
     Dates: start: 201001
  8. LITHIUM [Interacting]
     Indication: BIPOLAR DISORDER
     Route: 048
  9. LITHIUM [Interacting]
     Indication: BIPOLAR DISORDER
     Route: 048
     Dates: start: 20120608, end: 20120817
  10. LITHIUM [Interacting]
     Indication: BIPOLAR DISORDER
     Route: 048
     Dates: start: 20100707
  11. KLONOPIN [Interacting]
     Indication: BIPOLAR DISORDER
     Route: 048
  12. KLONOPIN [Interacting]
     Indication: BIPOLAR DISORDER
     Route: 048
     Dates: start: 201001
  13. KLONOPIN [Interacting]
     Indication: BIPOLAR DISORDER
     Route: 048
     Dates: start: 201001
  14. KLONOPIN [Interacting]
     Indication: BIPOLAR DISORDER
     Route: 048
     Dates: start: 1996
  15. PERPHENAZINE [Interacting]
     Indication: BIPOLAR DISORDER
     Route: 065
     Dates: start: 20101109
  16. PERPHENAZINE [Interacting]
     Indication: BIPOLAR DISORDER
     Route: 065
     Dates: start: 20120608
  17. PERPHENAZINE [Interacting]
     Indication: BIPOLAR DISORDER
     Route: 065
  18. PERPHENAZINE [Interacting]
     Indication: BIPOLAR DISORDER
     Route: 065
     Dates: start: 20120608
  19. TRAZODONE [Interacting]
     Indication: BIPOLAR DISORDER
     Route: 065
     Dates: start: 20120611
  20. LATUDA [Concomitant]
     Indication: BIPOLAR DISORDER
     Route: 065
     Dates: start: 20120612

REACTIONS (31)
  - Stupor [Not Recovered/Not Resolved]
  - Dysuria [Not Recovered/Not Resolved]
  - Salivary hypersecretion [Not Recovered/Not Resolved]
  - Incorrect route of drug administration [Unknown]
  - Confusional state [Not Recovered/Not Resolved]
  - Insomnia [Not Recovered/Not Resolved]
  - Lip swelling [Not Recovered/Not Resolved]
  - Asthenia [Not Recovered/Not Resolved]
  - Crying [Not Recovered/Not Resolved]
  - Disturbance in attention [Not Recovered/Not Resolved]
  - Dysgraphia [Not Recovered/Not Resolved]
  - Reading disorder [Not Recovered/Not Resolved]
  - Speech disorder [Not Recovered/Not Resolved]
  - Thirst [Not Recovered/Not Resolved]
  - Drooling [Not Recovered/Not Resolved]
  - Dysphagia [Not Recovered/Not Resolved]
  - Bedridden [Not Recovered/Not Resolved]
  - Feeling abnormal [Not Recovered/Not Resolved]
  - Activities of daily living impaired [Not Recovered/Not Resolved]
  - Tremor [Not Recovered/Not Resolved]
  - Constipation [Not Recovered/Not Resolved]
  - Gait disturbance [Not Recovered/Not Resolved]
  - Pain in extremity [Not Recovered/Not Resolved]
  - Gait disturbance [Not Recovered/Not Resolved]
  - Restless legs syndrome [Not Recovered/Not Resolved]
  - Akathisia [Not Recovered/Not Resolved]
  - Restlessness [Not Recovered/Not Resolved]
  - Somnolence [Not Recovered/Not Resolved]
  - Fatigue [Not Recovered/Not Resolved]
  - Drug interaction [Unknown]
  - Inappropriate schedule of drug administration [Unknown]
